FAERS Safety Report 25890073 (Version 1)
Quarter: 2025Q4

REPORT INFORMATION
  Report Type: Spontaneous
  Country: EU (occurrence: EU)
  Receive Date: 20251007
  Receipt Date: 20251007
  Transmission Date: 20260118
  Serious: Yes (Other)
  Sender: RANBAXY
  Company Number: EU-AFSSAPS-AVCN2025000439

PATIENT
  Age: 36 Year
  Sex: Male

DRUGS (4)
  1. ACETAMINOPHEN [Suspect]
     Active Substance: ACETAMINOPHEN
     Indication: Product used for unknown indication
     Dosage: 9 GRAM, DAILY
     Route: 065
     Dates: start: 202405, end: 202505
  2. OXYCODONE [Suspect]
     Active Substance: OXYCODONE
     Indication: Product used for unknown indication
     Dosage: UNK
     Route: 065
  3. OXYCODONE [Suspect]
     Active Substance: OXYCODONE
     Dosage: 1.514G/D BASED ON THE CALCULATION OF REIMBURSEMENTS
     Route: 065
     Dates: start: 202211, end: 202311
  4. OXYCODONE [Suspect]
     Active Substance: OXYCODONE
     Dosage: 2.555G/DAY BASED ON THE CALCULATION OF REIMBURSEMENTS
     Route: 065
     Dates: start: 202405, end: 202505

REACTIONS (1)
  - Drug abuse [Not Recovered/Not Resolved]
